FAERS Safety Report 17366996 (Version 1)
Quarter: 2020Q1

REPORT INFORMATION
  Report Type: Spontaneous
  Country: FR (occurrence: FR)
  Receive Date: 20200204
  Receipt Date: 20200204
  Transmission Date: 20200409
  Serious: Yes (Hospitalization)
  Sender: FDA-Public Use
  Company Number: FR-ELI_LILLY_AND_COMPANY-FR202001011822

PATIENT
  Age: 76 Year
  Sex: Female

DRUGS (6)
  1. PANTOPRAZOLE [Suspect]
     Active Substance: PANTOPRAZOLE
     Indication: PRODUCT USED FOR UNKNOWN INDICATION
     Dosage: 20 MG, DAILY
     Route: 048
     Dates: end: 20200109
  2. KARDEGIC [Suspect]
     Active Substance: ASPIRIN DL-LYSINE
     Indication: MYOCARDIAL ISCHAEMIA
     Dosage: 75 MG, DAILY
     Route: 042
     Dates: start: 20191211
  3. PREGABALINE [Suspect]
     Active Substance: PREGABALIN
     Indication: GAIT DISTURBANCE
     Dosage: 50 MG, DAILY
     Route: 048
     Dates: start: 20191215, end: 20191230
  4. ALLOPURINOL. [Suspect]
     Active Substance: ALLOPURINOL
     Indication: TUMOUR LYSIS SYNDROME
     Dosage: 100 MG, DAILY
     Route: 048
     Dates: end: 20200109
  5. DULOXETINE HYDROCHLORIDE. [Suspect]
     Active Substance: DULOXETINE HYDROCHLORIDE
     Indication: GAIT DISTURBANCE
     Dosage: 60 MG, UNKNOWN
     Route: 048
     Dates: start: 20191211, end: 20200109
  6. FUROSEMIDE. [Suspect]
     Active Substance: FUROSEMIDE
     Indication: HYPERTENSION
     Dosage: 80 MG, DAILY
     Route: 042
     Dates: start: 20191211, end: 202001

REACTIONS (1)
  - Agranulocytosis [Not Recovered/Not Resolved]

NARRATIVE: CASE EVENT DATE: 20191216
